FAERS Safety Report 5118479-9 (Version None)
Quarter: 2006Q4

REPORT INFORMATION
  Report Type: 
  Country: None (occurrence: None)
  Receive Date: 20061002
  Receipt Date: 20060920
  Transmission Date: 20070319
  Serious: Yes (Life-Threatening, Disabling)
  Sender: FDA-Public Use
  Company Number: US-JNJFOC-20060905443

PATIENT
  Sex: Male
  Weight: 27 kg

DRUGS (3)
  1. REMICADE [Suspect]
     Indication: KAWASAKI'S DISEASE
     Route: 042
  2. IMMUNE GLOBULIN INTRAVENOUS (HUMAN) [Concomitant]
  3. ASPIRIN [Concomitant]

REACTIONS (2)
  - CORONARY ARTERY ANEURYSM [None]
  - PLATELET COUNT INCREASED [None]
